FAERS Safety Report 16663401 (Version 1)
Quarter: 2019Q3

REPORT INFORMATION
  Report Type: Report from Study
  Country: US (occurrence: US)
  Receive Date: 20190802
  Receipt Date: 20190802
  Transmission Date: 20191004
  Serious: No
  Sender: FDA-Public Use
  Company Number: US-EXELIXIS-CABO-19020463

PATIENT
  Age: 63 Year
  Sex: Male

DRUGS (1)
  1. CABOMETYX [Suspect]
     Active Substance: CABOZANTINIB S-MALATE
     Indication: CHONDROSARCOMA
     Dosage: 60 MG, QD
     Route: 048
     Dates: start: 20190405

REACTIONS (19)
  - Constipation [Unknown]
  - Abnormal dreams [Not Recovered/Not Resolved]
  - Dry throat [Unknown]
  - Nausea [Recovering/Resolving]
  - Haematocrit decreased [Unknown]
  - Memory impairment [Not Recovered/Not Resolved]
  - Drug ineffective for unapproved indication [Unknown]
  - Diarrhoea [Unknown]
  - Blood pressure increased [Recovered/Resolved]
  - Malignant neoplasm progression [Unknown]
  - Decreased appetite [Unknown]
  - Dry mouth [Unknown]
  - Dyspnoea [Not Recovered/Not Resolved]
  - Dry skin [Not Recovered/Not Resolved]
  - Fatigue [Not Recovered/Not Resolved]
  - Nasal dryness [Unknown]
  - Dysphagia [Not Recovered/Not Resolved]
  - Genital rash [Unknown]
  - Dysphonia [Not Recovered/Not Resolved]

NARRATIVE: CASE EVENT DATE: 201904
